FAERS Safety Report 5473886-X (Version None)
Quarter: 2007Q3

REPORT INFORMATION
  Report Type: 
  Country: None (occurrence: None)
  Receive Date: 20070831
  Receipt Date: 20070426
  Transmission Date: 20080115
  Serious: No
  Sender: FDA-Public Use
  Company Number: 240589

PATIENT
  Age: 85 Year
  Sex: Male

DRUGS (9)
  1. LUCENTIS [Suspect]
     Indication: DRUG USE FOR UNKNOWN INDICATION
  2. ACTOS [Concomitant]
  3. AVAPRO [Concomitant]
  4. LASIX [Concomitant]
  5. STARLIX [Concomitant]
  6. COREG [Concomitant]
  7. ASPIRIN [Concomitant]
  8. INSULIN [Concomitant]
  9. ZOCOR [Concomitant]

REACTIONS (1)
  - EYE PAIN [None]
